FAERS Safety Report 20137808 (Version 1)
Quarter: 2021Q4

REPORT INFORMATION
  Report Type: Spontaneous
  Country: UA (occurrence: UA)
  Receive Date: 20211202
  Receipt Date: 20211202
  Transmission Date: 20220303
  Serious: Yes (Hospitalization)
  Sender: FDA-Public Use
  Company Number: UA-BoehringerIngelheim-2021-BI-141262

PATIENT
  Age: 49 Year
  Sex: Male

DRUGS (1)
  1. PRADAXA [Suspect]
     Active Substance: DABIGATRAN ETEXILATE MESYLATE
     Indication: Atrial fibrillation
     Route: 065

REACTIONS (1)
  - Heart transplant [Recovered/Resolved]

NARRATIVE: CASE EVENT DATE: 20211129
